FAERS Safety Report 6707032-9 (Version None)
Quarter: 2010Q2

REPORT INFORMATION
  Report Type: 
  Country: None (occurrence: None)
  Receive Date: 20100429
  Receipt Date: 20100422
  Transmission Date: 20101027
  Serious: Yes (Other)
  Sender: FDA-Public Use
  Company Number: A0856304A

PATIENT
  Age: 29 Year
  Sex: Female

DRUGS (1)
  1. ASPIRIN + CAFFEINE + SALICYLAMIDE (FORMULATION UNKNOWN) (ASPIRIN+CAFFE [Suspect]
     Indication: DRUG USE FOR UNKNOWN INDICATION

REACTIONS (3)
  - DEPENDENCE [None]
  - DRUG EXPOSURE DURING PREGNANCY [None]
  - PALPITATIONS [None]
